FAERS Safety Report 9094363 (Version 1)
Quarter: 2013Q3

REPORT INFORMATION
  Report Type: Spontaneous
  Country: US (occurrence: None)
  Receive Date: 20130214
  Receipt Date: 20130214
  Transmission Date: 20140515
  Serious: Yes (Hospitalization)
  Sender: FDA-Public Use
  Company Number: None

PATIENT
  Age: 48 Year
  Sex: Male
  Weight: 58.51 kg

DRUGS (18)
  1. GEMCITABINE [Suspect]
     Indication: PANCREATIC CARCINOMA METASTATIC
     Route: 042
     Dates: start: 20120727
  2. CISPLATIN [Suspect]
     Indication: PANCREATIC CARCINOMA
     Route: 042
     Dates: start: 20120727
  3. 5-FLUOROURACIL [Suspect]
     Indication: PANCREATIC CARCINOMA
     Route: 042
     Dates: start: 20120727
  4. XANAX [Concomitant]
  5. ASPIRIN [Concomitant]
  6. DEXAMETHASONE [Concomitant]
  7. COLACE [Concomitant]
  8. MARINOL [Concomitant]
  9. DURAGESIC [Concomitant]
  10. NEURONTIN [Concomitant]
  11. HEPARIN [Concomitant]
  12. CREON [Concomitant]
  13. REGLAN [Concomitant]
  14. MS CONTIN [Concomitant]
  15. PRILOSEC [Concomitant]
  16. ZOFRAN [Concomitant]
  17. OXYCODONE [Concomitant]
  18. POLYETHYLENE GLYCOL [Concomitant]

REACTIONS (7)
  - Pyrexia [None]
  - Chills [None]
  - Nausea [None]
  - Vomiting [None]
  - Fatigue [None]
  - Upper respiratory tract infection [None]
  - Rhinorrhoea [None]
